FAERS Safety Report 5356159-5 (Version None)
Quarter: 2007Q2

REPORT INFORMATION
  Report Type: 
  Country: None (occurrence: None)
  Receive Date: 20070612
  Receipt Date: 20070605
  Transmission Date: 20071010
  Serious: Yes (Disabling, Other)
  Sender: FDA-Public Use
  Company Number: GB-PFIZER INC-2007047089

PATIENT
  Age: 70 Year
  Sex: Male

DRUGS (10)
  1. LIPITOR [Suspect]
     Indication: BLOOD CHOLESTEROL
     Route: 048
     Dates: start: 20010101, end: 20070315
  2. AMLODIPINE [Concomitant]
  3. ACETYLSALICYLIC ACID SRT [Concomitant]
  4. FRUMIL [Concomitant]
  5. DIETHYLAMINE SALICYLATE [Concomitant]
  6. GLYCERYL TRINITRATE [Concomitant]
  7. IMDUR [Concomitant]
  8. PARACETAMOL [Concomitant]
  9. SOTALOL HYDROCHLORIDE [Concomitant]
  10. CARBOMER [Concomitant]

REACTIONS (2)
  - FEELING ABNORMAL [None]
  - MEMORY IMPAIRMENT [None]
